FAERS Safety Report 5008004-5 (Version None)
Quarter: 2006Q2

REPORT INFORMATION
  Report Type: 
  Country: None (occurrence: None)
  Receive Date: 20060404
  Receipt Date: 20050320
  Transmission Date: 20061013
  Serious: Yes (Hospitalization)
  Sender: FDA-Public Use
  Company Number: 2005047263

PATIENT
  Age: 27 Year
  Sex: Male

DRUGS (1)
  1. GEODON [Suspect]
     Indication: AGITATION
     Dosage: 140 MG

REACTIONS (1)
  - EXTRAPYRAMIDAL DISORDER [None]
